FAERS Safety Report 12607853 (Version 4)
Quarter: 2020Q3

REPORT INFORMATION
  Report Type: Report from Study
  Country: UA (occurrence: UA)
  Receive Date: 20160729
  Receipt Date: 20160826
  Transmission Date: 20201104
  Serious: Yes (Life-Threatening, Hospitalization)
  Sender: FDA-Public Use
  Company Number: UA-JNJFOC-20160719051

PATIENT
  Age: 71 Year
  Sex: Male
  Weight: 70 kg

DRUGS (11)
  1. VALSARTAN. [Concomitant]
     Active Substance: VALSARTAN
     Indication: HYPERTENSION
     Route: 048
  2. IBRUTINIB [Suspect]
     Active Substance: IBRUTINIB
     Indication: LYMPHOCYTIC LEUKAEMIA
     Route: 048
     Dates: start: 20130425, end: 20160721
  3. IBRUTINIB [Suspect]
     Active Substance: IBRUTINIB
     Indication: CHRONIC LYMPHOCYTIC LEUKAEMIA
     Route: 048
     Dates: start: 20130425, end: 20160721
  4. BENDAMUSTINE [Suspect]
     Active Substance: BENDAMUSTINE
     Indication: LYMPHOCYTIC LEUKAEMIA
     Dosage: ONCE
     Route: 042
     Dates: start: 20130425, end: 20130912
  5. BENDAMUSTINE [Suspect]
     Active Substance: BENDAMUSTINE
     Indication: CHRONIC LYMPHOCYTIC LEUKAEMIA
     Dosage: ONCE
     Route: 042
     Dates: start: 20130425, end: 20130912
  6. RITUXIMAB. [Suspect]
     Active Substance: RITUXIMAB
     Indication: LYMPHOCYTIC LEUKAEMIA
     Dosage: ONCE
     Route: 042
     Dates: start: 20130424, end: 20130911
  7. RITUXIMAB. [Suspect]
     Active Substance: RITUXIMAB
     Indication: CHRONIC LYMPHOCYTIC LEUKAEMIA
     Dosage: ONCE
     Route: 042
     Dates: start: 20130424, end: 20130911
  8. ROSUVASTATINUM [Concomitant]
     Active Substance: ROSUVASTATIN
     Indication: HYPOLIPIDAEMIA
     Route: 048
     Dates: start: 20141127
  9. BISOPROLOLUM [Concomitant]
     Indication: HYPERTENSION
     Route: 048
     Dates: start: 20141111
  10. VALSARTAN. [Concomitant]
     Active Substance: VALSARTAN
     Indication: HYPERTENSION
     Route: 048
     Dates: start: 201411
  11. CARDIOMAGNYL [Concomitant]
     Active Substance: ASPIRIN\MAGNESIUM HYDROXIDE
     Indication: ANGINA UNSTABLE
     Route: 048
     Dates: start: 20141127

REACTIONS (3)
  - Gastric haemorrhage [Recovered/Resolved with Sequelae]
  - Cardiac failure [Recovered/Resolved with Sequelae]
  - Pneumonia [Recovered/Resolved]

NARRATIVE: CASE EVENT DATE: 20160722
